FAERS Safety Report 25193574 (Version 2)
Quarter: 2025Q3

REPORT INFORMATION
  Report Type: Spontaneous
  Country: US (occurrence: US)
  Receive Date: 20250414
  Receipt Date: 20250810
  Transmission Date: 20251021
  Serious: No
  Sender: ALEXION PHARMACEUTICALS
  Company Number: US-AstraZeneca-CH-00847589A

PATIENT
  Sex: Female

DRUGS (2)
  1. FASENRA [Suspect]
     Active Substance: BENRALIZUMAB
     Indication: Asthma
  2. SYMBICORT [Suspect]
     Active Substance: BUDESONIDE\FORMOTEROL FUMARATE DIHYDRATE
     Indication: Product used for unknown indication
     Route: 065

REACTIONS (8)
  - Sinus disorder [Unknown]
  - Eye irritation [Unknown]
  - Nasal discomfort [Unknown]
  - Nasal congestion [Unknown]
  - Hypersensitivity [Unknown]
  - Off label use [Unknown]
  - Eosinophil count increased [Unknown]
  - Lung disorder [Unknown]
